FAERS Safety Report 10736962 (Version 2)
Quarter: 2015Q2

REPORT INFORMATION
  Report Type: Spontaneous
  Country: JP (occurrence: None)
  Receive Date: 20150122
  Receipt Date: 20150406
  Transmission Date: 20150821
  Serious: Yes (Other)
  Sender: FDA-Public Use
  Company Number: JP-20150005

PATIENT
  Age: 72 Year
  Sex: Male

DRUGS (2)
  1. EPIRUBICIN [Concomitant]
     Active Substance: EPIRUBICIN
     Indication: THERAPEUTIC EMBOLISATION
     Dosage: INTRA-ARTERIAL
     Route: 013
     Dates: start: 20130416, end: 20130416
  2. LIPIODOL ULTRA-FLUIDE [Suspect]
     Active Substance: ETHIODIZED OIL
     Indication: THERAPEUTIC EMBOLISATION
     Dosage: UNK (9 ML), INTRA-ARTERIAL
     Route: 013
     Dates: start: 20130416, end: 20130416

REACTIONS (2)
  - Thrombocytopenia [None]
  - Alanine aminotransferase increased [None]

NARRATIVE: CASE EVENT DATE: 20130417
